FAERS Safety Report 11525759 (Version 1)
Quarter: 2015Q3

REPORT INFORMATION
  Report Type: Spontaneous
  Country: FR (occurrence: FR)
  Receive Date: 20150918
  Receipt Date: 20150918
  Transmission Date: 20151125
  Serious: Yes (Life-Threatening)
  Sender: FDA-Public Use
  Company Number: FR-PFIZER INC-2015301079

PATIENT
  Age: 30 Year
  Sex: Female

DRUGS (2)
  1. SOLUPRED [Concomitant]
     Active Substance: PREDNISOLONE
     Dosage: UNK, AS NEEDED
  2. ADVIL [Suspect]
     Active Substance: IBUPROFEN
     Indication: TONSILLITIS
     Dosage: 1 DF, SINGLE
     Route: 048
     Dates: start: 20101212, end: 20101212

REACTIONS (2)
  - Hypersensitivity [Recovered/Resolved]
  - Product use issue [Recovered/Resolved]

NARRATIVE: CASE EVENT DATE: 20101212
